FAERS Safety Report 7204071-9 (Version None)
Quarter: 2010Q4

REPORT INFORMATION
  Report Type: 
  Country: None (occurrence: None)
  Receive Date: 20101230
  Receipt Date: 20101217
  Transmission Date: 20110411
  Serious: Yes (Hospitalization, Other)
  Sender: FDA-Public Use
  Company Number: US-ELI_LILLY_AND_COMPANY-US201012004851

PATIENT
  Age: 22 Year
  Sex: Male

DRUGS (1)
  1. SYMBYAX [Suspect]
     Indication: BIPOLAR I DISORDER
     Dosage: 6/50 MG, UNKNOWN
     Dates: start: 20101013

REACTIONS (7)
  - BRAIN INJURY [None]
  - COMA [None]
  - CONVULSION [None]
  - DRUG DOSE OMISSION [None]
  - INTENTIONAL OVERDOSE [None]
  - PSYCHIATRIC DECOMPENSATION [None]
  - SUICIDE ATTEMPT [None]
